FAERS Safety Report 6618169-7 (Version None)
Quarter: 2010Q1

REPORT INFORMATION
  Report Type: 
  Country: None (occurrence: None)
  Receive Date: 20100302
  Receipt Date: 20100226
  Transmission Date: 20100710
  Serious: Yes (Death)
  Sender: FDA-Public Use
  Company Number: 2010SP012380

PATIENT
  Age: 54 Year
  Sex: Male

DRUGS (11)
  1. CLARITIN REDITABS [Suspect]
     Indication: RHINITIS ALLERGIC
     Dosage: 10 MG; ; PO
     Route: 048
     Dates: start: 20090327, end: 20090524
  2. PIRESPA      (PIRFENIDONE)       (OTHER RESPIRATORY SYSTEM PRODUCTS) [Suspect]
     Indication: IDIOPATHIC PULMONARY FIBROSIS
     Dosage: 200 MG; TID; PO, 400 MG; TID; PO, 600 MG; TID; PO
     Route: 055
     Dates: start: 20090427, end: 20090510
  3. PIRESPA      (PIRFENIDONE)       (OTHER RESPIRATORY SYSTEM PRODUCTS) [Suspect]
     Indication: IDIOPATHIC PULMONARY FIBROSIS
     Dosage: 200 MG; TID; PO, 400 MG; TID; PO, 600 MG; TID; PO
     Route: 055
     Dates: start: 20090511, end: 20090524
  4. PIRESPA      (PIRFENIDONE)       (OTHER RESPIRATORY SYSTEM PRODUCTS) [Suspect]
     Indication: IDIOPATHIC PULMONARY FIBROSIS
     Dosage: 200 MG; TID; PO, 400 MG; TID; PO, 600 MG; TID; PO
     Route: 055
     Dates: start: 20090525, end: 20090726
  5. PIRESPA      (PIRFENIDONE)       (OTHER RESPIRATORY SYSTEM PRODUCTS) [Suspect]
     Indication: IDIOPATHIC PULMONARY FIBROSIS
     Dosage: 200 MG; TID; PO, 400 MG; TID; PO, 600 MG; TID; PO
     Route: 055
     Dates: start: 20090727, end: 20091218
  6. MUCOSTA [Concomitant]
  7. OMEPRAL [Concomitant]
  8. BACTRAMIN [Concomitant]
  9. AMOBAN [Concomitant]
  10. FRAGMIN [Concomitant]
  11. GANCICLOVIR [Concomitant]

REACTIONS (1)
  - IDIOPATHIC PULMONARY FIBROSIS [None]
